FAERS Safety Report 17804201 (Version 3)
Quarter: 2020Q2

REPORT INFORMATION
  Report Type: Spontaneous
  Country: US (occurrence: US)
  Receive Date: 20200519
  Receipt Date: 20200604
  Transmission Date: 20200714
  Serious: Yes (Death, Hospitalization, Other)
  Sender: FDA-Public Use
  Company Number: US-GLAXOSMITHKLINE-US2020083397

PATIENT
  Age: 43 Year
  Sex: Female

DRUGS (1)
  1. BENLYSTA [Suspect]
     Active Substance: BELIMUMAB
     Indication: SYSTEMIC LUPUS ERYTHEMATOSUS
     Dosage: 10 MG/KG
     Route: 042
     Dates: end: 202001

REACTIONS (6)
  - Product dose omission [Unknown]
  - Cardiac failure [Fatal]
  - Abdominal distension [Unknown]
  - Total lung capacity decreased [Fatal]
  - Social problem [Unknown]
  - Joint swelling [Unknown]

NARRATIVE: CASE EVENT DATE: 202001
